FAERS Safety Report 5890934-3 (Version None)
Quarter: 2008Q3

REPORT INFORMATION
  Report Type: 
  Country: None (occurrence: None)
  Receive Date: 20080922
  Receipt Date: 20080912
  Transmission Date: 20090109
  Serious: Yes (Hospitalization)
  Sender: FDA-Public Use
  Company Number: A0731837A

PATIENT
  Age: 46 Year
  Sex: Male
  Weight: 105.5 kg

DRUGS (12)
  1. AVANDIA [Suspect]
     Indication: DIABETES MELLITUS
     Dosage: 8MG PER DAY
     Route: 048
     Dates: start: 20010117, end: 20060105
  2. GLUCOPHAGE [Concomitant]
  3. INSULIN [Concomitant]
  4. METOPROLOL TARTRATE [Concomitant]
  5. METFORMIN HCL [Concomitant]
  6. NEURONTIN [Concomitant]
  7. PROTONIX [Concomitant]
  8. TRIAMTERENE AND HYDROCHLOROTHIAZIDE [Concomitant]
  9. GLIPIZIDE [Concomitant]
  10. BYETTA [Concomitant]
  11. ALTACE [Concomitant]
  12. PREVACID [Concomitant]

REACTIONS (3)
  - HEART INJURY [None]
  - MYOCARDIAL INFARCTION [None]
  - PAIN [None]
